FAERS Safety Report 10094235 (Version 1)
Quarter: 2014Q2

REPORT INFORMATION
  Report Type: Spontaneous
  Country: MX (occurrence: MX)
  Receive Date: 20140422
  Receipt Date: 20140422
  Transmission Date: 20141212
  Serious: Yes (Death, Hospitalization, Other)
  Sender: FDA-Public Use
  Company Number: MX-ROCHE-1384042

PATIENT
  Age: 12 Year
  Sex: Female

DRUGS (9)
  1. TRETINOIN [Suspect]
     Indication: ACUTE PROMYELOCYTIC LEUKAEMIA
     Route: 065
  2. TRETINOIN [Suspect]
     Route: 065
  3. TRETINOIN [Suspect]
     Route: 065
  4. DAUNORUBICIN [Suspect]
     Indication: ACUTE PROMYELOCYTIC LEUKAEMIA
     Route: 065
  5. DAUNORUBICIN [Suspect]
     Route: 065
  6. MITOXANTRONE [Suspect]
     Indication: ACUTE PROMYELOCYTIC LEUKAEMIA
     Route: 065
  7. METHOTREXATE [Suspect]
     Indication: ACUTE PROMYELOCYTIC LEUKAEMIA
     Route: 065
  8. MERCAPTOPURINE [Suspect]
     Indication: ACUTE PROMYELOCYTIC LEUKAEMIA
     Route: 065
  9. DEXAMETHASONE [Concomitant]
     Indication: RETINOIC ACID SYNDROME
     Route: 042

REACTIONS (7)
  - Coagulopathy [Fatal]
  - Retinoic acid syndrome [Fatal]
  - Headache [Fatal]
  - Haemorrhage [Fatal]
  - Febrile neutropenia [Fatal]
  - Leukaemia recurrent [Fatal]
  - Cerebral haemorrhage [Fatal]
